FAERS Safety Report 8403588-9 (Version None)
Quarter: 2012Q2

REPORT INFORMATION
  Report Type: 
  Country: None (occurrence: None)
  Receive Date: 20120601
  Receipt Date: 20120521
  Transmission Date: 20120825
  Serious: Yes (Hospitalization)
  Sender: FDA-Public Use
  Company Number: DE-CELGENEUS-062-50794-12043245

PATIENT
  Age: 75 Year
  Sex: Male
  Weight: 93.7 kg

DRUGS (2)
  1. VIDAZA [Suspect]
     Dosage: 50 MILLIGRAM
     Route: 058
     Dates: start: 20110331
  2. FINURAL [Concomitant]
     Route: 048

REACTIONS (1)
  - ABSCESS JAW [None]
